FAERS Safety Report 5006939-0 (Version None)
Quarter: 2006Q2

REPORT INFORMATION
  Report Type: 
  Country: None (occurrence: None)
  Receive Date: 20060516
  Receipt Date: 20060503
  Transmission Date: 20061013
  Serious: Yes (Hospitalization)
  Sender: FDA-Public Use
  Company Number: 6022368

PATIENT
  Age: 66 Year
  Sex: Male

DRUGS (7)
  1. LEVOTHYROXINE SODIUM [Suspect]
     Indication: HYPOTHYROIDISM
     Dosage: 225 MCG (225 MCG, 1 IN 1 D) ORAL
     Route: 048
  2. METFORMIN [Suspect]
     Indication: DIABETES MELLITUS
     Dosage: 2550 MG (850 MG, 3 IN 1 D) ORAL
     Route: 048
     Dates: end: 20060324
  3. GLIMEPIRIDE [Suspect]
     Indication: DIABETES MELLITUS
     Dosage: 3 MG (3 MG, 1 IN 1 D), ORAL
     Route: 048
     Dates: end: 20060324
  4. TAHOR (10 MG, FILM-COATED TABLET) (ATORVASTATIN CALCIUM) [Suspect]
     Indication: HYPERCHOLESTEROLAEMIA
     Dosage: 10 MG (10 MG, 1 IN 1 D) ORAL
     Route: 048
  5. ZANIDIP (20 MG, FILM-COATED TABLET) (LERCANIDIPINE HYDROCHLORIDE) [Suspect]
     Indication: HYPERTENSION
     Dosage: 20 MG (20 MG, 1 IN 1 D) ORAL
     Route: 048
  6. COAPROVEL (FILM-COATED TABLET) (HYDROCHLOROTHIAZIDE, IRBESARTAN) [Suspect]
     Indication: HYPERTENSION
     Dosage: (1 IN 1 D) ORAL
     Route: 048
     Dates: start: 20060324
  7. UN-ALFA (1 MICROGRAM, CAPSULE) (ALFACALCIDOL) [Concomitant]

REACTIONS (3)
  - HYPERCALCAEMIA [None]
  - RENAL FAILURE ACUTE [None]
  - TACHYCARDIA [None]
